FAERS Safety Report 12625027 (Version 3)
Quarter: 2016Q4

REPORT INFORMATION
  Report Type: Spontaneous
  Country: US (occurrence: US)
  Receive Date: 20160805
  Receipt Date: 20161104
  Transmission Date: 20170207
  Serious: No
  Sender: FDA-Public Use
  Company Number: US-PFIZER INC-2016375224

PATIENT
  Age: 51 Year
  Sex: Female
  Weight: 62 kg

DRUGS (2)
  1. EXEMESTANE. [Suspect]
     Active Substance: EXEMESTANE
     Indication: BREAST CANCER METASTATIC
     Dosage: 25 MG, DAILY
     Dates: start: 201505
  2. EXEMESTANE. [Suspect]
     Active Substance: EXEMESTANE
     Indication: BREAST CANCER
     Dosage: 25 MG, DAILY
     Dates: start: 201205

REACTIONS (17)
  - Breast cancer [Not Recovered/Not Resolved]
  - Rash [Unknown]
  - Chest pain [Unknown]
  - Peripheral swelling [Unknown]
  - Mood altered [Unknown]
  - Pain in jaw [Unknown]
  - Fatigue [Unknown]
  - Back pain [Unknown]
  - Asthenia [Unknown]
  - Disease progression [Not Recovered/Not Resolved]
  - Sleep disorder [Unknown]
  - Hyperhidrosis [Unknown]
  - Dyspnoea [Unknown]
  - Pain in extremity [Unknown]
  - Depressed mood [Unknown]
  - Anxiety [Unknown]
  - Visual impairment [Unknown]

NARRATIVE: CASE EVENT DATE: 201505
